FAERS Safety Report 13702574 (Version 1)
Quarter: 2017Q2

REPORT INFORMATION
  Report Type: Spontaneous
  Country: IT (occurrence: IT)
  Receive Date: 20170629
  Receipt Date: 20170629
  Transmission Date: 20170830
  Serious: Yes (Other)
  Sender: FDA-Public Use
  Company Number: IT-IMPAX LABORATORIES, INC-2017-IPXL-01817

PATIENT
  Age: 42 Year
  Sex: Male

DRUGS (13)
  1. BACLOFEN. [Suspect]
     Active Substance: BACLOFEN
     Dosage: 500 ?G, DAILY
     Route: 037
     Dates: start: 20100308
  2. BACLOFEN. [Suspect]
     Active Substance: BACLOFEN
     Dosage: 350 ?G, DAILY
     Route: 037
  3. ZICONOTIDE [Suspect]
     Active Substance: ZICONOTIDE
     Dosage: 2.39 ?G, DAILY
     Route: 065
     Dates: start: 20100407
  4. ATENOLOL. [Concomitant]
     Active Substance: ATENOLOL
     Indication: PRODUCT USED FOR UNKNOWN INDICATION
     Dosage: 100 MG, DAILY
     Route: 048
     Dates: end: 20100503
  5. PREGABALIN. [Concomitant]
     Active Substance: PREGABALIN
     Indication: MUSCLE SPASTICITY
     Dosage: 150 MG, DAILY
     Route: 048
     Dates: end: 20100503
  6. BACLOFEN. [Suspect]
     Active Substance: BACLOFEN
     Indication: MUSCLE SPASTICITY
     Dosage: 75 MG, DAILY
     Route: 048
  7. BACLOFEN. [Suspect]
     Active Substance: BACLOFEN
     Dosage: UNK
     Route: 037
     Dates: start: 201001
  8. BACLOFEN. [Suspect]
     Active Substance: BACLOFEN
     Dosage: 590 ?G, DAILY
     Route: 037
     Dates: start: 20100407
  9. ZICONOTIDE [Suspect]
     Active Substance: ZICONOTIDE
     Indication: PAIN
     Dosage: 1.178 ?G, DAILY
     Route: 065
     Dates: start: 20170326
  10. ZICONOTIDE [Suspect]
     Active Substance: ZICONOTIDE
     Dosage: 1.744 ?G, DAILY
     Route: 065
  11. ZICONOTIDE [Suspect]
     Active Substance: ZICONOTIDE
     Dosage: 2.5 ?G, DAILY
     Route: 065
  12. BACLOFEN. [Suspect]
     Active Substance: BACLOFEN
     Dosage: 500 ?G, DAILY
     Route: 037
     Dates: start: 20100326
  13. BACLOFEN. [Suspect]
     Active Substance: BACLOFEN
     Dosage: 430 ?G, DAILY
     Route: 037

REACTIONS (4)
  - Cognitive disorder [Recovered/Resolved]
  - Infection [Recovered/Resolved]
  - Status epilepticus [Recovered/Resolved]
  - Drug effect incomplete [Unknown]
